FAERS Safety Report 14259071 (Version 2)
Quarter: 2017Q4

REPORT INFORMATION
  Report Type: Report from Study
  Country: FR (occurrence: FR)
  Receive Date: 20171207
  Receipt Date: 20171213
  Transmission Date: 20180321
  Serious: Yes (Hospitalization)
  Sender: FDA-Public Use
  Company Number: FR-SHIRE-FR201730069

PATIENT

DRUGS (11)
  1. VINCRISTINE [Suspect]
     Active Substance: VINCRISTINE
     Indication: ACUTE LYMPHOCYTIC LEUKAEMIA
     Dosage: 1 MG, 1X/DAY:QD (D1, D8, D15)
     Route: 042
     Dates: start: 20170814
  2. ENDOXAN                            /00021101/ [Suspect]
     Active Substance: CYCLOPHOSPHAMIDE
     Indication: ACUTE LYMPHOCYTIC LEUKAEMIA
     Dosage: 640 MG, (D29)
     Route: 042
     Dates: start: 20170918, end: 20170918
  3. ARA-C [Suspect]
     Active Substance: CYTARABINE
     Indication: ACUTE LYMPHOCYTIC LEUKAEMIA
     Dosage: 30 MG, 1X/DAY:QD (D4 AND ONGOING)
     Route: 037
     Dates: start: 20170817
  4. ADRIAMYCIN [Suspect]
     Active Substance: DOXORUBICIN HYDROCHLORIDE
     Indication: ACUTE LYMPHOCYTIC LEUKAEMIA
     Dosage: 15.6 MG, (D1, D8, D15)
     Route: 042
     Dates: start: 20170814, end: 20170821
  5. DEXAMETHASONE. [Suspect]
     Active Substance: DEXAMETHASONE
     Indication: ACUTE LYMPHOCYTIC LEUKAEMIA
     Dosage: 8 MG, (D1-D7, D15-D21)
     Route: 048
     Dates: start: 20170814, end: 20170904
  6. METHOTREXATE. [Suspect]
     Active Substance: METHOTREXATE
     Indication: ACUTE LYMPHOCYTIC LEUKAEMIA
     Dosage: 12 MG, 1X/DAY:QD (D4 AND ONGOING)
     Route: 037
     Dates: start: 20170817
  7. LANVIS [Suspect]
     Active Substance: THIOGUANINE ANHYDROUS
     Indication: ACUTE LYMPHOCYTIC LEUKAEMIA
     Dosage: 30 MG, (D29)
     Route: 048
     Dates: start: 20170918
  8. ARA-C [Suspect]
     Active Substance: CYTARABINE
     Dosage: 48 UNK, UNK
     Route: 042
     Dates: start: 20170921
  9. ONCASPAR [Suspect]
     Active Substance: PEGASPARGASE
     Indication: ACUTE LYMPHOCYTIC LEUKAEMIA
     Dosage: 1575 IU, D4
     Route: 042
     Dates: start: 20170814
  10. HYDROCORTISONE. [Suspect]
     Active Substance: HYDROCORTISONE
     Indication: ACUTE LYMPHOCYTIC LEUKAEMIA
     Dosage: 15 MG, 1X/DAY:QD
     Route: 037
     Dates: start: 20170817
  11. XALUPRINE [Suspect]
     Active Substance: MERCAPTOPURINE
     Indication: ACUTE LYMPHOCYTIC LEUKAEMIA
     Dosage: UNK
     Route: 065
     Dates: start: 20170720

REACTIONS (1)
  - Pyrexia [Recovered/Resolved]

NARRATIVE: CASE EVENT DATE: 20170918
